FAERS Safety Report 4419900-1 (Version None)
Quarter: 2004Q3

REPORT INFORMATION
  Report Type: 
  Country: None (occurrence: None)
  Receive Date: 20040805
  Receipt Date: 20040805
  Transmission Date: 20050211
  Serious: Yes (Life-Threatening, Hospitalization)
  Sender: FDA-Public Use
  Company Number: None

PATIENT
  Age: 59 Year
  Sex: Male
  Weight: 98 kg

DRUGS (3)
  1. BEVACIZUMAB [Suspect]
     Indication: COLON CANCER
     Dosage: 500 MG Q 2 WK INTRAVENOUS
     Route: 042
     Dates: start: 20040625, end: 20040625
  2. BEVACIZUMAB [Suspect]
     Indication: COLON CANCER
     Dosage: 500 MG Q 2 WK INTRAVENOUS
     Route: 042
     Dates: start: 20040709, end: 20040709
  3. FOLFIRI [Concomitant]

REACTIONS (5)
  - CATHETER RELATED COMPLICATION [None]
  - FACE OEDEMA [None]
  - OEDEMA PERIPHERAL [None]
  - RESPIRATORY DISORDER [None]
  - SUPERIOR VENA CAVAL OCCLUSION [None]
